FAERS Safety Report 13855131 (Version 2)
Quarter: 2017Q3

REPORT INFORMATION
  Report Type: Report from Study
  Country: US (occurrence: US)
  Receive Date: 20170810
  Receipt Date: 20170914
  Transmission Date: 20171127
  Serious: Yes (Death)
  Sender: FDA-Public Use
  Company Number: US-PFIZER INC-2017342840

PATIENT
  Age: 32 Year
  Sex: Female

DRUGS (2)
  1. HEROIN [Suspect]
     Active Substance: DIAMORPHINE
     Dosage: UNK
  2. FENTANYL CITRATE. [Suspect]
     Active Substance: FENTANYL CITRATE
     Dosage: UNK

REACTIONS (7)
  - Bradycardia [Fatal]
  - Acute kidney injury [Fatal]
  - Bradypnoea [Fatal]
  - Seizure [Fatal]
  - Coma [Fatal]
  - Depressed level of consciousness [Fatal]
  - Toxicity to various agents [Fatal]
